FAERS Safety Report 23230429 (Version 1)
Quarter: 2023Q4

REPORT INFORMATION
  Report Type: Spontaneous
  Country: FR (occurrence: FR)
  Receive Date: 20231127
  Receipt Date: 20231127
  Transmission Date: 20240109
  Serious: Yes (Life-Threatening)
  Sender: FDA-Public Use
  Company Number: None

PATIENT
  Age: 52 Year
  Sex: Male
  Weight: 57 kg

DRUGS (10)
  1. BLEOMYCIN SULFATE [Suspect]
     Active Substance: BLEOMYCIN SULFATE
     Indication: Hodgkin^s disease
     Dosage: UNK, 10 UI/M2 ? J8, 1 FP
     Route: 042
     Dates: start: 20221209, end: 20230215
  2. CYCLOPHOSPHAMIDE [Suspect]
     Active Substance: CYCLOPHOSPHAMIDE
     Indication: Hodgkin^s disease
     Dosage: 1250 MG/M2, J1
     Route: 042
     Dates: start: 20221209, end: 20230215
  3. DOXORUBICIN [Suspect]
     Active Substance: DOXORUBICIN
     Indication: Hodgkin^s disease
     Dosage: 25 MG/M2, 1 FP
     Route: 042
     Dates: start: 20230315, end: 20230315
  4. DOXORUBICIN [Suspect]
     Active Substance: DOXORUBICIN
     Indication: Hodgkin^s disease
     Dosage: 35 MG/M2, J1
     Route: 042
     Dates: start: 20221209, end: 20230215
  5. DACARBAZINE [Suspect]
     Active Substance: DACARBAZINE
     Indication: Hodgkin^s disease
     Dosage: 375 MG/M2, 1 FP
     Route: 042
     Dates: start: 20230315, end: 20230315
  6. ETOPOSIDE [Suspect]
     Active Substance: ETOPOSIDE
     Indication: Hodgkin^s disease
     Dosage: 200 MG/M2, J1-3,
     Route: 042
     Dates: start: 20221209, end: 20230215
  7. PREDNISONE [Suspect]
     Active Substance: PREDNISONE
     Indication: Hodgkin^s disease
     Dosage: 40 MG/M2, J1-14, 1 FP
     Route: 048
     Dates: start: 20221209, end: 20230215
  8. PROCARBAZINE [Suspect]
     Active Substance: PROCARBAZINE
     Indication: Hodgkin^s disease
     Dosage: 100 MG/M2, J1 J7,
     Route: 048
     Dates: start: 20221209, end: 20230215
  9. VINBLASTINE [Suspect]
     Active Substance: VINBLASTINE
     Indication: Hodgkin^s disease
     Dosage: UNK, 6 MG/M2, 1 FP
     Route: 042
     Dates: start: 20230315, end: 20230315
  10. VINCRISTINE [Suspect]
     Active Substance: VINCRISTINE
     Indication: Hodgkin^s disease
     Dosage: 1.4 MG/M2, J8
     Route: 042
     Dates: start: 20221209, end: 20230215

REACTIONS (1)
  - Progressive multifocal leukoencephalopathy [Not Recovered/Not Resolved]

NARRATIVE: CASE EVENT DATE: 20230417
